FAERS Safety Report 5508887-6 (Version None)
Quarter: 2007Q4

REPORT INFORMATION
  Report Type: 
  Country: None (occurrence: None)
  Receive Date: 20071026
  Receipt Date: 20070822
  Transmission Date: 20080405
  Serious: Yes (Other)
  Sender: FDA-Public Use
  Company Number: 2007US002014

PATIENT
  Age: 83 Year
  Sex: Female

DRUGS (2)
  1. VAPRISOL [Suspect]
     Indication: HYPONATRAEMIA
     Dosage: IV DRIP
     Route: 041
     Dates: start: 20070816, end: 20070821
  2. LEXAPRO [Suspect]
     Indication: DRUG USE FOR UNKNOWN INDICATION
     Dates: end: 20070818

REACTIONS (1)
  - DRUG INEFFECTIVE [None]
